FAERS Safety Report 23694334 (Version 5)
Quarter: 2024Q2

REPORT INFORMATION
  Report Type: Spontaneous
  Country: IL (occurrence: IL)
  Receive Date: 20240401
  Receipt Date: 20240528
  Transmission Date: 20240716
  Serious: Yes (Other)
  Sender: FDA-Public Use
  Company Number: IL-002147023-NVSC2024IL032826

PATIENT
  Age: 51 Year
  Sex: Female

DRUGS (3)
  1. HYRIMOZ [Suspect]
     Active Substance: ADALIMUMAB-ADAZ
     Indication: Colitis
     Dosage: UNK UNK, Q2W
     Route: 058
     Dates: start: 2024
  2. HYRIMOZ [Suspect]
     Active Substance: ADALIMUMAB-ADAZ
     Dosage: 40 MG, QW
     Route: 058
  3. HYRIMOZ [Suspect]
     Active Substance: ADALIMUMAB-ADAZ
     Dosage: UNK, QW
     Route: 065

REACTIONS (14)
  - Colitis [Recovering/Resolving]
  - Accidental exposure to product [Recovered/Resolved]
  - Discomfort [Recovering/Resolving]
  - Feeling abnormal [Recovering/Resolving]
  - Stress [Unknown]
  - Haemorrhage [Recovering/Resolving]
  - Abdominal distension [Recovering/Resolving]
  - Asthenia [Unknown]
  - Fatigue [Not Recovered/Not Resolved]
  - Head discomfort [Recovering/Resolving]
  - Swelling face [Recovering/Resolving]
  - Restlessness [Recovering/Resolving]
  - Headache [Recovering/Resolving]
  - Needle issue [Recovered/Resolved]
